FAERS Safety Report 6476409-1 (Version None)
Quarter: 2009Q4

REPORT INFORMATION
  Report Type: 
  Country: None (occurrence: None)
  Receive Date: 20091207
  Receipt Date: 20091125
  Transmission Date: 20100525
  Serious: Yes (Hospitalization)
  Sender: FDA-Public Use
  Company Number: US-BIOGENIDEC-2009BI010153

PATIENT
  Age: 52 Year
  Sex: Female

DRUGS (9)
  1. TYSABRI [Suspect]
     Indication: MULTIPLE SCLEROSIS
     Route: 042
     Dates: start: 20071119
  2. TYSABRI [Suspect]
     Route: 042
     Dates: start: 20071119
  3. CALCIUM [Concomitant]
  4. PREMARIN [Concomitant]
  5. VITAMIN D [Concomitant]
  6. ADVAIR DISKUS 100/50 [Concomitant]
  7. NEURONTIN [Concomitant]
  8. SINGULAIR [Concomitant]
  9. MAGNESIUM [Concomitant]

REACTIONS (4)
  - ANAPHYLACTIC REACTION [None]
  - ANAPHYLACTIC SHOCK [None]
  - FORMICATION [None]
  - LIP SWELLING [None]
